FAERS Safety Report 9495676 (Version 2)
Quarter: 2013Q3

REPORT INFORMATION
  Report Type: Spontaneous
  Country: US (occurrence: US)
  Receive Date: 20130903
  Receipt Date: 20130919
  Transmission Date: 20140515
  Serious: Yes (Other)
  Sender: FDA-Public Use
  Company Number: US-UCBSA-096136

PATIENT
  Age: 54 Year
  Sex: Female

DRUGS (1)
  1. CIMZIA [Suspect]
     Indication: CROHN^S DISEASE
     Dosage: HOLD
     Dates: start: 20090507, end: 201308

REACTIONS (2)
  - Subcutaneous abscess [Not Recovered/Not Resolved]
  - Cyst [Recovered/Resolved]
